FAERS Safety Report 10785845 (Version 1)
Quarter: 2015Q1

REPORT INFORMATION
  Report Type: Spontaneous
  Country: US (occurrence: None)
  Receive Date: 20150210
  Receipt Date: 20150210
  Transmission Date: 20150721
  Serious: No
  Sender: FDA-Public Use
  Company Number: None

PATIENT
  Age: 41 Year
  Sex: Female

DRUGS (1)
  1. YAZ [Suspect]
     Active Substance: DROSPIRENONE\ETHINYL ESTRADIOL
     Indication: CONTRACEPTION
     Dosage: 1
     Route: 048

REACTIONS (4)
  - Road traffic accident [None]
  - Liver disorder [None]
  - Deep vein thrombosis [None]
  - Fracture [None]

NARRATIVE: CASE EVENT DATE: 20141209
